FAERS Safety Report 8262082-9 (Version None)
Quarter: 2012Q2

REPORT INFORMATION
  Report Type: 
  Country: None (occurrence: None)
  Receive Date: 20120405
  Receipt Date: 20120328
  Transmission Date: 20120825
  Serious: Yes (Other)
  Sender: FDA-Public Use
  Company Number: PHFR2012GB000499

PATIENT
  Sex: Male

DRUGS (2)
  1. RISPERIDONE [Concomitant]
  2. CLOZARIL [Suspect]
     Indication: SCHIZOPHRENIA
     Dosage: UNK UKN, UNK
     Route: 048
     Dates: start: 20111212, end: 20120308

REACTIONS (6)
  - TORSADE DE POINTES [None]
  - ELECTROCARDIOGRAM QT PROLONGED [None]
  - CONVULSION [None]
  - ARRHYTHMIA [None]
  - CARDIAC DISORDER [None]
  - EOSINOPHIL COUNT INCREASED [None]
